FAERS Safety Report 15866971 (Version 1)
Quarter: 2019Q1

REPORT INFORMATION
  Report Type: Spontaneous
  Country: DE (occurrence: DE)
  Receive Date: 20190125
  Receipt Date: 20190125
  Transmission Date: 20190417
  Serious: Yes (Hospitalization)
  Sender: FDA-Public Use
  Company Number: DE-ACCORD-103290

PATIENT
  Age: 75 Year
  Sex: Female
  Weight: 61 kg

DRUGS (11)
  1. GABAPENTIN. [Concomitant]
     Active Substance: GABAPENTIN
  2. INSULIN [Concomitant]
     Active Substance: INSULIN NOS
  3. PANTOPRAZOLE [Concomitant]
     Active Substance: PANTOPRAZOLE
  4. AMITRIPTYLINE [Concomitant]
     Active Substance: AMITRIPTYLINE
  5. XIPAMIDE [Concomitant]
     Active Substance: XIPAMIDE
  6. OXYCODONE/OXYCODONE HYDROCHLORIDE/OXYCODONE PECTINATE/OXYCODONE TEREPHTHALATE [Concomitant]
  7. ACETYLSALICYLIC ACID [Suspect]
     Active Substance: ASPIRIN
     Indication: PRODUCT USED FOR UNKNOWN INDICATION
  8. METAMIZOLE SODIUM [Concomitant]
     Active Substance: METAMIZOLE SODIUM
  9. CLOPIDOGREL [Suspect]
     Active Substance: CLOPIDOGREL BISULFATE
     Indication: PRODUCT USED FOR UNKNOWN INDICATION
  10. AMLODIPINE [Concomitant]
     Active Substance: AMLODIPINE BESYLATE
  11. CARVEDILOL/CARVEDILOL HYDROCHLODRIDE [Concomitant]

REACTIONS (1)
  - Mucosal haemorrhage [Recovered/Resolved]

NARRATIVE: CASE EVENT DATE: 20150830
